FAERS Safety Report 4800159-8 (Version None)
Quarter: 2005Q4

REPORT INFORMATION
  Report Type: 
  Country: None (occurrence: None)
  Receive Date: 20051017
  Receipt Date: 20051006
  Transmission Date: 20060501
  Serious: Yes (Death, Life-Threatening)
  Sender: FDA-Public Use
  Company Number: JP-JNJFOC-20051001305

PATIENT
  Age: 59 Year
  Sex: Female

DRUGS (12)
  1. TAVANIC [Suspect]
     Route: 042
     Dates: start: 20041108, end: 20041112
  2. CEFAZOLIN [Concomitant]
     Indication: PNEUMONIA
     Route: 042
     Dates: start: 20041105, end: 20041105
  3. CLONT [Concomitant]
     Indication: PNEUMONIA
     Route: 042
     Dates: start: 20041105, end: 20041105
  4. DIFLUCAN [Concomitant]
     Indication: PNEUMONIA
     Route: 065
     Dates: start: 20041112, end: 20041118
  5. FORTUM [Concomitant]
     Indication: PNEUMONIA
     Route: 065
     Dates: start: 20041112, end: 20041116
  6. NOREPINEPHRINE BITARTRATE [Concomitant]
     Route: 042
     Dates: start: 20041108
  7. SOLUSIN [Concomitant]
     Route: 042
     Dates: start: 20041108
  8. LIQUAEMIN INJ [Concomitant]
     Indication: THROMBOSIS PROPHYLAXIS
     Route: 042
     Dates: start: 20041105
  9. LASIX [Concomitant]
     Indication: OLIGURIA
     Route: 042
     Dates: start: 20041105
  10. PARACEFAN [Concomitant]
     Indication: SEDATIVE THERAPY
     Route: 042
     Dates: start: 20041109
  11. PROPOFOL [Concomitant]
     Indication: SEDATIVE THERAPY
     Route: 042
     Dates: start: 20041108
  12. FENTANYL CITRATE [Concomitant]
     Indication: SEDATIVE THERAPY
     Route: 042
     Dates: start: 20041108

REACTIONS (2)
  - AORTIC RUPTURE [None]
  - HAEMORRHAGE [None]
